FAERS Safety Report 7529713-X (Version None)
Quarter: 2011Q2

REPORT INFORMATION
  Report Type: 
  Country: None (occurrence: None)
  Receive Date: 20110607
  Receipt Date: 20110530
  Transmission Date: 20111010
  Serious: Yes (Hospitalization)
  Sender: FDA-Public Use
  Company Number: B0720189A

PATIENT
  Sex: Male

DRUGS (11)
  1. ADALAT [Concomitant]
     Indication: HYPERTENSION
     Route: 048
  2. PROMACTA [Suspect]
     Indication: IDIOPATHIC THROMBOCYTOPENIC PURPURA
     Dosage: 25MG PER DAY
     Route: 048
     Dates: start: 20110325, end: 20110419
  3. BACTRIM [Concomitant]
     Indication: CYSTITIS
     Route: 048
  4. ALDACTONE [Concomitant]
     Route: 048
  5. NOVOLIN N [Concomitant]
     Indication: DIABETES MELLITUS
  6. FUROSEMIDE [Concomitant]
     Route: 048
  7. DECADRON [Concomitant]
     Route: 048
  8. IMMUNOGLOBULINS [Concomitant]
     Route: 042
  9. LOSARTAN POTASSIUM [Concomitant]
     Indication: HYPERTENSION
     Route: 048
  10. BARACLUDE [Concomitant]
     Indication: CHRONIC HEPATITIS
     Route: 048
  11. FAMOTIDINE [Concomitant]
     Route: 048

REACTIONS (6)
  - CHILLS [None]
  - CONDUCTION DISORDER [None]
  - MYOCARDIAL INFARCTION [None]
  - DEHYDRATION [None]
  - MALAISE [None]
  - RENAL FAILURE [None]
